FAERS Safety Report 5474327-9 (Version None)
Quarter: 2007Q4

REPORT INFORMATION
  Report Type: 
  Country: None (occurrence: None)
  Receive Date: 20071002
  Receipt Date: 20070919
  Transmission Date: 20080405
  Serious: Yes (Death, Hospitalization)
  Sender: FDA-Public Use
  Company Number: US-MERCK-0709USA04234

PATIENT
  Age: 44 Year
  Sex: Male

DRUGS (16)
  1. CASPOFUNGIN MSD [Suspect]
     Indication: FUNGAL INFECTION
     Route: 065
  2. CASPOFUNGIN MSD [Suspect]
     Route: 065
  3. CASPOFUNGIN MSD [Suspect]
     Route: 065
  4. CASPOFUNGIN MSD [Suspect]
     Route: 065
  5. CASPOFUNGIN MSD [Suspect]
     Route: 065
  6. CASPOFUNGIN MSD [Suspect]
     Route: 065
  7. CASPOFUNGIN MSD [Suspect]
     Route: 065
  8. CASPOFUNGIN MSD [Suspect]
     Route: 065
  9. CASPOFUNGIN MSD [Suspect]
     Route: 065
  10. CASPOFUNGIN MSD [Suspect]
     Route: 065
  11. AMPHOTERICIN B [Concomitant]
     Route: 065
  12. AMPHOTERICIN B [Concomitant]
     Route: 065
  13. ITRACONAZOLE [Concomitant]
     Route: 065
  14. ITRACONAZOLE [Concomitant]
     Route: 065
  15. ITRACONAZOLE [Concomitant]
     Route: 065
  16. ITRACONAZOLE [Concomitant]
     Route: 065

REACTIONS (2)
  - MULTI-ORGAN FAILURE [None]
  - TRANSPLANT FAILURE [None]
